FAERS Safety Report 9981375 (Version 2)
Quarter: 2014Q1

REPORT INFORMATION
  Report Type: Report from Study
  Country: CO (occurrence: CO)
  Receive Date: 20140307
  Receipt Date: 20140317
  Transmission Date: 20141002
  Serious: Yes (Death, Hospitalization)
  Sender: FDA-Public Use
  Company Number: CO-ASTRAZENECA-2014SE16141

PATIENT
  Age: 21341 Day
  Sex: Female

DRUGS (2)
  1. BRILINTA [Suspect]
     Indication: INFARCTION
     Route: 048
     Dates: start: 20140221, end: 20140225
  2. ASA [Concomitant]

REACTIONS (3)
  - Cerebrovascular accident [Fatal]
  - Chest pain [Not Recovered/Not Resolved]
  - Pain in extremity [Not Recovered/Not Resolved]
